FAERS Safety Report 23687557 (Version 2)
Quarter: 2024Q3

REPORT INFORMATION
  Report Type: Spontaneous
  Country: US (occurrence: US)
  Receive Date: 20240329
  Receipt Date: 20240712
  Transmission Date: 20241016
  Serious: No
  Sender: XERIS PHARMACEUTICALS
  Company Number: US-BRIAN CONNER SVP QUALITY AND CHIEF COMPLIANCE OFFICER-2024XER00136

PATIENT
  Sex: Female

DRUGS (1)
  1. GVOKE [Suspect]
     Active Substance: GLUCAGON
     Indication: Hypoglycaemia
     Dosage: INJECTED IN THE THIGH

REACTIONS (2)
  - Product delivery mechanism issue [Unknown]
  - No adverse event [Unknown]

NARRATIVE: CASE EVENT DATE: 20240101
